FAERS Safety Report 4365816-9 (Version None)
Quarter: 2004Q2

REPORT INFORMATION
  Report Type: 
  Country: None (occurrence: None)
  Receive Date: 20040521
  Receipt Date: 20040513
  Transmission Date: 20050107
  Serious: Yes (Other)
  Sender: FDA-Public Use
  Company Number: US-JNJFOC-20040503639

PATIENT
  Age: 14 Year
  Sex: Female
  Weight: 59.8748 kg

DRUGS (7)
  1. ORTHO EVRA [Suspect]
     Indication: MENSTRUATION IRREGULAR
     Dosage: 1 DOSE (S), TRANSDERMAL
     Route: 062
     Dates: start: 20040507, end: 20040511
  2. TRILEPTAL [Concomitant]
  3. MYCELEX [Concomitant]
  4. PREDNISONE TAB [Concomitant]
  5. FERROUS SULFATE TAB [Concomitant]
  6. PREVACID [Concomitant]
  7. TYLENOL W/ CODEINE NO. 3 [Concomitant]

REACTIONS (2)
  - CONDITION AGGRAVATED [None]
  - CONVULSION [None]
